FAERS Safety Report 4430880-5 (Version None)
Quarter: 2004Q3

REPORT INFORMATION
  Report Type: 
  Country: None (occurrence: None)
  Receive Date: 20040823
  Receipt Date: 20040813
  Transmission Date: 20050211
  Serious: Yes (Other)
  Sender: FDA-Public Use
  Company Number: FR-BRISTOL-MYERS SQUIBB COMPANY-12670089

PATIENT
  Age: 65 Year
  Sex: Female

DRUGS (9)
  1. TAXOL [Suspect]
     Indication: BREAST CANCER
     Dosage: 1ST DOSE: 29-JUN-04
     Route: 042
     Dates: start: 20040721, end: 20040721
  2. HERCEPTIN [Suspect]
     Indication: BREAST CANCER
     Dosage: 1ST DOSE: 29-JUN-04
     Dates: start: 20040720, end: 20040720
  3. LONAFARNIB [Suspect]
     Indication: BREAST CANCER
     Dosage: INTENT TO TREAT, NOT RECEIVED
     Route: 048
  4. POTASSIUM CHLORIDE [Concomitant]
     Indication: METASTASES TO BONE
     Dates: start: 20040706
  5. CLODRONIC ACID [Concomitant]
     Indication: METASTASES TO BONE
     Dates: start: 20040706
  6. VERAPAMIL [Concomitant]
     Dates: start: 20000101
  7. TRAMADOL HCL [Concomitant]
     Dates: start: 20040622
  8. OMEPRAZOLE [Concomitant]
     Dates: start: 20040622
  9. BROMAZEPAM [Concomitant]
     Dates: start: 20040622

REACTIONS (3)
  - ELECTROCARDIOGRAM QT CORRECTED INTERVAL PROLONGED [None]
  - ISCHAEMIA [None]
  - OXYGEN SATURATION DECREASED [None]
